FAERS Safety Report 5829825-2 (Version None)
Quarter: 2008Q3

REPORT INFORMATION
  Report Type: 
  Country: None (occurrence: None)
  Receive Date: 20080801
  Receipt Date: 20080422
  Transmission Date: 20090109
  Serious: No
  Sender: FDA-Public Use
  Company Number: US-BAYER-200811907BCC

PATIENT
  Age: 36 Year
  Sex: Female
  Weight: 57 kg

DRUGS (1)
  1. MIDOL [Suspect]
     Indication: DYSMENORRHOEA
     Dosage: AS USED: 2 DF  UNIT DOSE: 1 DF
     Route: 048

REACTIONS (1)
  - DYSMENORRHOEA [None]
